FAERS Safety Report 6772070-7 (Version None)
Quarter: 2010Q2

REPORT INFORMATION
  Report Type: 
  Country: None (occurrence: None)
  Receive Date: 20100616
  Receipt Date: 20100610
  Transmission Date: 20101027
  Serious: Yes (Death)
  Sender: FDA-Public Use
  Company Number: A0864287A

PATIENT
  Sex: Female

DRUGS (1)
  1. AVANDAMET [Suspect]

REACTIONS (2)
  - CARDIAC ARREST [None]
  - SURGERY [None]
